FAERS Safety Report 10554080 (Version 2)
Quarter: 2014Q4

REPORT INFORMATION
  Report Type: Spontaneous
  Country: FR (occurrence: FR)
  Receive Date: 20141030
  Receipt Date: 20141030
  Transmission Date: 20150529
  Serious: Yes (Hospitalization)
  Sender: FDA-Public Use
  Company Number: FR-JNJFOC-20141009748

PATIENT
  Sex: Male
  Weight: 69 kg

DRUGS (5)
  1. LEPTICUR [Concomitant]
     Active Substance: TROPATEPINE HYDROCHLORIDE
     Dosage: TWICE
     Route: 065
     Dates: start: 1998, end: 20140617
  2. ZYPREXA [Concomitant]
     Active Substance: OLANZAPINE
     Dosage: ONCE
     Route: 065
     Dates: start: 1998
  3. DEPAKOTE [Concomitant]
     Active Substance: DIVALPROEX SODIUM
     Dosage: TWICE
     Route: 065
     Dates: start: 1998
  4. HALDOL [Concomitant]
     Active Substance: HALOPERIDOL
     Indication: BIPOLAR I DISORDER
     Route: 048
  5. HALDOL DECANOATE [Suspect]
     Active Substance: HALOPERIDOL DECANOATE
     Indication: BIPOLAR I DISORDER
     Dosage: 2 AMPOULES PER MONTH
     Route: 030
     Dates: start: 1998, end: 20140617

REACTIONS (3)
  - Agitation [Recovered/Resolved]
  - Tremor [Unknown]
  - Rhinitis allergic [Recovered/Resolved]

NARRATIVE: CASE EVENT DATE: 1998
